FAERS Safety Report 8478220-9 (Version None)
Quarter: 2012Q2

REPORT INFORMATION
  Report Type: 
  Country: None (occurrence: None)
  Receive Date: 20120615
  Receipt Date: 20120604
  Transmission Date: 20120825
  Serious: Yes (Other)
  Sender: FDA-Public Use
  Company Number: DSA_57789_2012

PATIENT
  Sex: Male

DRUGS (3)
  1. LEUCOVORIN CALCIUM [Suspect]
     Indication: HEPATIC NEOPLASM MALIGNANT
     Dosage: 200 MG/M2 INTRAVENOUS ( NOT OTERWISE SPECIFIED)
     Route: 042
  2. FLUOROURACIL [Suspect]
     Indication: HEPATIC NEOPLASM MALIGNANT
     Dosage: 400 MG/M2 INTRAVENOUS BOLUS (600 MG/M2 INTRAVENOUS  (NOT OTHERWISE SPECIFIED)
     Route: 040
  3. OXALIPLATIN [Suspect]
     Indication: HEPATIC NEOPLASM MALIGNANT
     Dosage: 85 MG/M2 EVERY OTHER WEEK INTRAVENOUS ( NOT OTERWISE SPECIFIED)
     Route: 042

REACTIONS (1)
  - BONE MARROW FAILURE [None]
